FAERS Safety Report 20671250 (Version 5)
Quarter: 2022Q2

REPORT INFORMATION
  Report Type: Spontaneous
  Country: US (occurrence: US)
  Receive Date: 20220404
  Receipt Date: 20220510
  Transmission Date: 20220721
  Serious: Yes (Hospitalization, Other)
  Sender: FDA-Public Use
  Company Number: US-SA-SAC20220330001773

PATIENT
  Age: 17 Year
  Sex: Female
  Weight: 114 kg

DRUGS (5)
  1. DUPIXENT [Suspect]
     Active Substance: DUPILUMAB
     Indication: Illness
     Dosage: 300 MG, QOW
     Route: 058
  2. PROZAC [Concomitant]
     Active Substance: FLUOXETINE HYDROCHLORIDE
     Dosage: 10 MG, QD
     Route: 048
  3. ZYRTEC [Concomitant]
     Active Substance: CETIRIZINE HYDROCHLORIDE
     Dosage: 10MG
     Route: 048
  4. SINGULAIR [Concomitant]
     Active Substance: MONTELUKAST SODIUM
     Dosage: 10MG, EVERY EVENING
     Route: 048
  5. GARDASIL 9 [Concomitant]
     Active Substance: HUMAN PAPILLOMAVIRUS TYPE 11 L1 CAPSID PROTEIN ANTIGEN\HUMAN PAPILLOMAVIRUS TYPE 16 L1 CAPSID PROTEI
     Route: 030
     Dates: start: 20210727, end: 20210727

REACTIONS (13)
  - Thrombocytopenia [Not Recovered/Not Resolved]
  - Immune thrombocytopenia [Unknown]
  - Heavy menstrual bleeding [Unknown]
  - Oral disorder [Unknown]
  - Gingival bleeding [Unknown]
  - Purpura [Unknown]
  - Microcytic anaemia [Unknown]
  - Exposure to SARS-CoV-2 [Unknown]
  - Eczema [Unknown]
  - Idiopathic urticaria [Not Recovered/Not Resolved]
  - Petechiae [Not Recovered/Not Resolved]
  - Rash erythematous [Unknown]
  - Product use in unapproved indication [Unknown]

NARRATIVE: CASE EVENT DATE: 20210817
